FAERS Safety Report 21548500 (Version 1)
Quarter: 2022Q4

REPORT INFORMATION
  Report Type: Spontaneous
  Country: US (occurrence: US)
  Receive Date: 20221103
  Receipt Date: 20221103
  Transmission Date: 20230113
  Serious: No
  Sender: FDA-Public Use
  Company Number: NORTMC-13422(v1)

PATIENT
  Sex: Female
  Weight: 56.689 kg

DRUGS (1)
  1. BACLOFEN [Suspect]
     Active Substance: BACLOFEN
     Indication: Muscle spasms
     Dosage: 30 MILLIGRAM, QD AND SOMETIMES 20 OR 10 MG A DAY
     Route: 065

REACTIONS (8)
  - Vertigo [Unknown]
  - Muscle spasms [Unknown]
  - Insomnia [Unknown]
  - Pain [Unknown]
  - Sciatica [Unknown]
  - Visual impairment [Unknown]
  - Blood pressure increased [Unknown]
  - Musculoskeletal disorder [Unknown]
